FAERS Safety Report 9821734 (Version 2)
Quarter: 2014Q1

REPORT INFORMATION
  Report Type: Spontaneous
  Country: US (occurrence: US)
  Receive Date: 20140116
  Receipt Date: 20140306
  Transmission Date: 20141002
  Serious: No
  Sender: FDA-Public Use
  Company Number: US-PFIZER INC-2014013113

PATIENT
  Age: 44 Year
  Sex: Female
  Weight: 113 kg

DRUGS (5)
  1. LYRICA [Suspect]
     Indication: SCIATICA
     Dosage: UNK
  2. LYRICA [Suspect]
     Dosage: 75 MG IN THE MORNING AND 150 MG AT BED TIME
     Dates: start: 2013, end: 2013
  3. LYRICA [Suspect]
     Dosage: 150 MG, 1X/DAY
     Dates: start: 201310
  4. LYRICA [Suspect]
     Dosage: 75 MG IN THE MORNING AND 150 MG AT BED TIME
     Dates: start: 2013
  5. ULTRAM [Concomitant]
     Indication: LIGAMENT RUPTURE
     Dosage: 50 MG, AS NEEDED

REACTIONS (1)
  - Pain [Recovered/Resolved]
